FAERS Safety Report 12671122 (Version 1)
Quarter: 2016Q3

REPORT INFORMATION
  Report Type: Spontaneous
  Country: US (occurrence: None)
  Receive Date: 20160819
  Receipt Date: 20160819
  Transmission Date: 20161109
  Serious: No
  Sender: FDA-Public Use
  Company Number: None

PATIENT
  Age: 22 Year
  Sex: Male
  Weight: 83.92 kg

DRUGS (1)
  1. CIPRODEX [Suspect]
     Active Substance: CIPROFLOXACIN HYDROCHLORIDE\DEXAMETHASONE
     Indication: EAR PAIN
     Dosage: 4 DROP(S) EVERY 12 HOURS INTO THE EAR

REACTIONS (3)
  - Medication residue present [None]
  - Pain [None]
  - Ear pain [None]

NARRATIVE: CASE EVENT DATE: 20160712
